FAERS Safety Report 21356528 (Version 1)
Quarter: 2022Q3

REPORT INFORMATION
  Report Type: Spontaneous
  Country: JP (occurrence: JP)
  Receive Date: 20220920
  Receipt Date: 20220920
  Transmission Date: 20221027
  Serious: Yes (Other)
  Sender: FDA-Public Use
  Company Number: JP-PFIZER INC-PV202200065044

PATIENT
  Age: 72 Year
  Sex: Male

DRUGS (8)
  1. PREGABALIN [Suspect]
     Active Substance: PREGABALIN
     Indication: Arthralgia
     Dosage: 1 DF
     Route: 048
     Dates: start: 202204
  2. PREGABALIN [Suspect]
     Active Substance: PREGABALIN
     Dosage: 2 DF, 2X/DAY
     Route: 048
     Dates: start: 20220830
  3. CELECOXIB [Suspect]
     Active Substance: CELECOXIB
     Dosage: 100 MG, 1X/DAY, AS NEEDED
     Route: 048
  4. ESFLURBIPROFEN\HERBALS [Suspect]
     Active Substance: ESFLURBIPROFEN\HERBALS
     Dosage: ONE TAPE FOR EACH KNEE
  5. WARFARIN [Concomitant]
     Active Substance: WARFARIN
     Indication: Cardiac failure
     Dosage: 2.5 DF
     Route: 048
  6. SPIRONOLACTONE [Concomitant]
     Active Substance: SPIRONOLACTONE
     Route: 048
  7. FUROSEMIDE [Concomitant]
     Active Substance: FUROSEMIDE
     Dosage: 40 MG
     Route: 048
  8. DIGOXIN [Concomitant]
     Active Substance: DIGOXIN

REACTIONS (2)
  - Cardiac failure congestive [Unknown]
  - Off label use [Unknown]

NARRATIVE: CASE EVENT DATE: 20220401
